FAERS Safety Report 22046464 (Version 1)
Quarter: 2023Q1

REPORT INFORMATION
  Report Type: Spontaneous
  Country: US (occurrence: US)
  Receive Date: 20230228
  Receipt Date: 20230228
  Transmission Date: 20230417
  Serious: No
  Sender: FDA-Public Use
  Company Number: US-TEVA-2023-US-2856928

PATIENT
  Sex: Female

DRUGS (1)
  1. AUSTEDO [Suspect]
     Active Substance: DEUTETRABENAZINE
     Indication: Bipolar disorder
     Dosage: 6 MILLIGRAM DAILY;
     Route: 065
     Dates: start: 20220614

REACTIONS (1)
  - Onychomycosis [Unknown]
